FAERS Safety Report 9742633 (Version 2)
Quarter: 2015Q3

REPORT INFORMATION
  Report Type: Spontaneous
  Country: US (occurrence: US)
  Receive Date: 20131210
  Receipt Date: 20150804
  Transmission Date: 20151125
  Serious: No
  Sender: FDA-Public Use
  Company Number: US-GILEAD-2009-0025221

PATIENT
  Age: 79 Year
  Sex: Female

DRUGS (20)
  1. ULTRAM [Concomitant]
     Active Substance: TRAMADOL HYDROCHLORIDE
  2. CLARITIN [Concomitant]
     Active Substance: LORATADINE
  3. CARTIA XT [Concomitant]
     Active Substance: DILTIAZEM HYDROCHLORIDE
  4. CALCIUM [Concomitant]
     Active Substance: CALCIUM
  5. GLUCOSAMINE [Concomitant]
     Active Substance: GLUCOSAMINE
  6. PRISTIQ EXTENDED RELEASE [Concomitant]
     Active Substance: DESVENLAFAXINE SUCCINATE
  7. FUROSEMIDE. [Concomitant]
     Active Substance: FUROSEMIDE
  8. LUNESTA [Concomitant]
     Active Substance: ESZOPICLONE
  9. VITAMIN D [Concomitant]
     Active Substance: CHOLECALCIFEROL
  10. POTASSIUM [Concomitant]
     Active Substance: POTASSIUM
  11. MELATONIN [Concomitant]
     Active Substance: MELATONIN
  12. CARDURA [Concomitant]
     Active Substance: DOXAZOSIN MESYLATE
  13. METFORMIN [Concomitant]
     Active Substance: METFORMIN HYDROCHLORIDE
  14. ASPIRIN. [Concomitant]
     Active Substance: ASPIRIN
  15. COZAAR [Concomitant]
     Active Substance: LOSARTAN POTASSIUM
  16. LETAIRIS [Suspect]
     Active Substance: AMBRISENTAN
     Indication: PULMONARY ARTERIAL HYPERTENSION
     Route: 048
     Dates: start: 20080527, end: 20091015
  17. MULTIVITAMIN [Concomitant]
     Active Substance: VITAMINS
  18. FERROUS SULFATE [Concomitant]
     Active Substance: FERROUS SULFATE\FERROUS SULFATE, DRIED
  19. SYNTHROID [Concomitant]
     Active Substance: LEVOTHYROXINE SODIUM
  20. IMDUR [Concomitant]
     Active Substance: ISOSORBIDE MONONITRATE

REACTIONS (1)
  - Red blood cell count decreased [Recovering/Resolving]

NARRATIVE: CASE EVENT DATE: 20090701
